FAERS Safety Report 6925090-3 (Version None)
Quarter: 2010Q3

REPORT INFORMATION
  Report Type: 
  Country: None (occurrence: None)
  Receive Date: 20100816
  Receipt Date: 20100805
  Transmission Date: 20110219
  Serious: Yes (Hospitalization)
  Sender: FDA-Public Use
  Company Number: US-ASTRAZENECA-2010SE06762

PATIENT
  Age: 70 Year
  Sex: Female

DRUGS (44)
  1. SEROQUEL [Suspect]
     Route: 048
  2. SEROQUEL [Suspect]
     Route: 048
  3. ATIVAN [Concomitant]
  4. FISH OIL [Concomitant]
     Dosage: 4 TIMES A DAY
  5. FISH OIL [Concomitant]
  6. SLIDING INSULIN 70/30 [Concomitant]
     Dosage: 25 UNITS BEFORE MEALS, 17 UNITS BEFORE SUPPER
  7. PRILOSEC [Concomitant]
     Route: 048
  8. VYTORIN [Concomitant]
     Dosage: 20 Q AT BED TIME
  9. TRICHLOR [Concomitant]
  10. MAGNESIUM [Concomitant]
  11. PACERONE [Concomitant]
     Route: 048
  12. COUMADIN [Concomitant]
  13. LEVOTHYROXINE [Concomitant]
  14. LOPRESSOR [Concomitant]
     Route: 048
  15. LOPRESSOR [Concomitant]
     Route: 048
  16. XANAX [Concomitant]
  17. LASIX [Concomitant]
  18. LASIX [Concomitant]
  19. FORADIL [Concomitant]
  20. PERCOCET [Concomitant]
     Dosage: 1-2 Q 4-6 PRN PAIN
  21. MULTIVITAMIN WITH IRON [Concomitant]
     Dosage: 1 TWICE DAILY
     Route: 048
  22. K-DUR 10 [Concomitant]
  23. LEVEMIR [Concomitant]
     Dosage: 45 UNITS
  24. LEVEMIR [Concomitant]
     Dosage: 10 UNITS TWO TIMES A DAY
     Route: 058
  25. NEXIUM [Concomitant]
  26. ATROVENT [Concomitant]
  27. CYMBALTA [Concomitant]
  28. ASPIRIN [Concomitant]
  29. DARVOCET [Concomitant]
     Dosage: PRN
  30. DIGOXIN [Concomitant]
  31. DILTIAZEM [Concomitant]
  32. IMDUR [Concomitant]
  33. IMDUR [Concomitant]
  34. LYRICA [Concomitant]
  35. LYRICA [Concomitant]
  36. NITROGLYCERIN [Concomitant]
     Dosage: PRN
  37. NITROGLYCERIN [Concomitant]
     Route: 060
  38. NOVOLOG [Concomitant]
     Dosage: 25 UNITS BEFORE MEALS
  39. CORDARONE [Concomitant]
  40. SUCRALFATE [Concomitant]
  41. HEPARIN [Concomitant]
  42. DUONEB [Concomitant]
  43. CARDIAZEM [Concomitant]
     Route: 048
  44. ZETIA [Concomitant]

REACTIONS (6)
  - BRONCHITIS [None]
  - HYPOGLYCAEMIA [None]
  - LIVER FUNCTION TEST ABNORMAL [None]
  - PNEUMONIA [None]
  - RESPIRATORY FAILURE [None]
  - SPEECH DISORDER [None]
